FAERS Safety Report 6149176-9 (Version None)
Quarter: 2009Q2

REPORT INFORMATION
  Report Type: 
  Country: None (occurrence: None)
  Receive Date: 20090407
  Receipt Date: 20090330
  Transmission Date: 20091009
  Serious: Yes (Other)
  Sender: FDA-Public Use
  Company Number: 2009000634

PATIENT
  Age: 81 Year
  Sex: Female

DRUGS (5)
  1. MACUGEN [Suspect]
     Dosage: 0.3 MG, INTRA-VITREAL
     Dates: start: 20090122
  2. TOBREX (TOBRAMYCIN SULFATE) [Concomitant]
  3. BENOXI [Concomitant]
  4. MYDRUM [Concomitant]
  5. BETADINE [Concomitant]

REACTIONS (3)
  - BLINDNESS TRANSIENT [None]
  - INTRAOCULAR PRESSURE INCREASED [None]
  - POST PROCEDURAL COMPLICATION [None]
